FAERS Safety Report 24857737 (Version 2)
Quarter: 2025Q3

REPORT INFORMATION
  Report Type: Other
  Country: US (occurrence: US)
  Receive Date: 20250117
  Receipt Date: 20250918
  Transmission Date: 20251021
  Serious: No
  Sender: TRAVERE THERAPEUTICS
  Company Number: US-TRAVERE-2024TVT01308

PATIENT
  Sex: Male

DRUGS (1)
  1. FILSPARI [Suspect]
     Active Substance: SPARSENTAN
     Indication: IgA nephropathy
     Route: 048
     Dates: start: 20241119

REACTIONS (4)
  - Joint swelling [Recovered/Resolved]
  - Dysgeusia [Not Recovered/Not Resolved]
  - Oedema [Recovered/Resolved]
  - Urine odour abnormal [Unknown]
